FAERS Safety Report 12826245 (Version 1)
Quarter: 2016Q4

REPORT INFORMATION
  Report Type: Spontaneous
  Country: US (occurrence: US)
  Receive Date: 20161006
  Receipt Date: 20161006
  Transmission Date: 20170207
  Serious: No
  Sender: FDA-Public Use
  Company Number: US-JAZZ-2016-US-012658

PATIENT
  Sex: Female

DRUGS (17)
  1. AUGMENTIN [Concomitant]
     Active Substance: AMOXICILLIN\CLAVULANATE POTASSIUM
  2. CLONAZEPAM. [Concomitant]
     Active Substance: CLONAZEPAM
  3. LEXAPRO [Concomitant]
     Active Substance: ESCITALOPRAM OXALATE
  4. IMITREX [Concomitant]
     Active Substance: SUMATRIPTAN SUCCINATE
  5. ZOFRAN [Concomitant]
     Active Substance: ONDANSETRON HYDROCHLORIDE
  6. FENTANYL. [Concomitant]
     Active Substance: FENTANYL
  7. PHENERGAN [Concomitant]
     Active Substance: PROMETHAZINE HYDROCHLORIDE
  8. ROBAXIN-750 [Concomitant]
  9. XYREM [Suspect]
     Active Substance: SODIUM OXYBATE
     Indication: NARCOLEPSY
     Dosage: 2.25 G, BID
     Route: 048
     Dates: start: 201606, end: 201607
  10. KEFLEX [Concomitant]
     Active Substance: CEPHALEXIN
  11. CARDIZEM [Concomitant]
     Active Substance: DILTIAZEM HYDROCHLORIDE
  12. TYLENOL EXTRA STRENGTH [Concomitant]
     Active Substance: ACETAMINOPHEN
  13. AMITRIPTYLINE HCL [Concomitant]
     Active Substance: AMITRIPTYLINE
  14. NUVIGIL [Concomitant]
     Active Substance: ARMODAFINIL
  15. MELOXICAM. [Concomitant]
     Active Substance: MELOXICAM
  16. XYREM [Suspect]
     Active Substance: SODIUM OXYBATE
     Dosage: 3 G, BID
     Route: 048
     Dates: start: 201607
  17. ADDERALL [Concomitant]
     Active Substance: AMPHETAMINE ASPARTATE\AMPHETAMINE SULFATE\DEXTROAMPHETAMINE SACCHARATE\DEXTROAMPHETAMINE SULFATE

REACTIONS (1)
  - Fungal infection [Unknown]

NARRATIVE: CASE EVENT DATE: 2016
